FAERS Safety Report 5788454-X (Version None)
Quarter: 2008Q2

REPORT INFORMATION
  Report Type: 
  Country: None (occurrence: None)
  Receive Date: 20080623
  Receipt Date: 20080609
  Transmission Date: 20081010
  Serious: Yes (Death, Other)
  Sender: FDA-Public Use
  Company Number: 2008AL005152

PATIENT
  Age: 75 Year
  Sex: Male
  Weight: 81.6475 kg

DRUGS (1)
  1. DIGOXIN [Suspect]
     Indication: ARRHYTHMIA
     Dosage: 0.25 MG DAILY PO
     Route: 048
     Dates: start: 20070612

REACTIONS (4)
  - CONFUSIONAL STATE [None]
  - MYOCARDIAL INFARCTION [None]
  - PALLOR [None]
  - VOMITING [None]
